FAERS Safety Report 25504399 (Version 1)
Quarter: 2025Q3

REPORT INFORMATION
  Report Type: Spontaneous
  Country: AU (occurrence: None)
  Receive Date: 20250701
  Receipt Date: 20250701
  Transmission Date: 20251020
  Serious: Yes (Hospitalization, Disabling, Other)
  Sender: FDA-CTU
  Company Number: None

PATIENT
  Age: 26 Year
  Sex: Female
  Weight: 55 kg

DRUGS (2)
  1. DESVENLAFAXINE SUCCINATE [Suspect]
     Active Substance: DESVENLAFAXINE SUCCINATE
     Indication: Anxiety
  2. DESVENLAFAXINE SUCCINATE [Suspect]
     Active Substance: DESVENLAFAXINE SUCCINATE
     Indication: Depression

REACTIONS (36)
  - Wrong technique in product usage process [None]
  - Therapy interrupted [None]
  - Abdominal discomfort [None]
  - Diarrhoea [None]
  - Vomiting [None]
  - Nausea [None]
  - Hypophagia [None]
  - Gastrooesophageal reflux disease [None]
  - Chronic gastritis [None]
  - Weight decreased [None]
  - Malnutrition [None]
  - Dyspnoea [None]
  - Lung disorder [None]
  - Exercise tolerance decreased [None]
  - Postural orthostatic tachycardia syndrome [None]
  - Hypotension [None]
  - Palpitations [None]
  - Arrhythmia [None]
  - Seizure [None]
  - Syncope [None]
  - Hypoaesthesia [None]
  - Paraesthesia [None]
  - Hypoglycaemia [None]
  - Gait inability [None]
  - Panic attack [None]
  - Confusional state [None]
  - Restlessness [None]
  - Conversion disorder [None]
  - Chest pain [None]
  - Constipation [None]
  - Migraine [None]
  - Cerebrovascular accident [None]
  - Dizziness [None]
  - Photophobia [None]
  - Quality of life decreased [None]
  - Nervous system disorder [None]

NARRATIVE: CASE EVENT DATE: 20230918
